FAERS Safety Report 21756210 (Version 1)
Quarter: 2022Q4

REPORT INFORMATION
  Report Type: Spontaneous
  Country: US (occurrence: None)
  Receive Date: 20221220
  Receipt Date: 20221220
  Transmission Date: 20230113
  Serious: Yes (Hospitalization)
  Sender: FDA-Public Use
  Company Number: US-FARMAPROD-202212-2574

PATIENT
  Age: 69 Year
  Sex: Male

DRUGS (27)
  1. OXERVATE [Suspect]
     Active Substance: CENEGERMIN-BKBJ
     Indication: Neurotrophic keratopathy
     Route: 047
     Dates: start: 20221031
  2. OXERVATE [Suspect]
     Active Substance: CENEGERMIN-BKBJ
     Indication: Ulcerative keratitis
  3. OXERVATE [Suspect]
     Active Substance: CENEGERMIN-BKBJ
     Indication: Hypoaesthesia eye
  4. VALACYCLOVIR [Concomitant]
     Active Substance: VALACYCLOVIR HYDROCHLORIDE
  5. TRAZODONE HCL [Concomitant]
     Active Substance: TRAZODONE HYDROCHLORIDE
  6. NATACYN [Concomitant]
     Active Substance: NATAMYCIN
  7. MONTELUKAST SODIUM [Concomitant]
     Active Substance: MONTELUKAST SODIUM
  8. METHOCARBAMOL [Concomitant]
     Active Substance: METHOCARBAMOL
  9. MECLIZINE HYDROCHLORIDE [Concomitant]
     Active Substance: MECLIZINE HYDROCHLORIDE
  10. ISOSORBIDE MONONITRATE [Concomitant]
     Active Substance: ISOSORBIDE MONONITRATE
     Dosage: EXTENDED RELEASE
     Route: 048
  11. ACETAMINOPHEN\HYDROCODONE [Concomitant]
     Active Substance: ACETAMINOPHEN\HYDROCODONE
     Dosage: 7.5-300 MG
  12. FLOVENT DISKUS [Concomitant]
     Active Substance: FLUTICASONE PROPIONATE
     Dosage: BLISTER WITH DEVICE
  13. DILTIAZEM [Concomitant]
     Active Substance: DILTIAZEM
     Dosage: EXTENDED RELEASE 24 HOURS
  14. MINERALS\VITAMINS [Concomitant]
     Active Substance: MINERALS\VITAMINS
     Dosage: 0.4-300-250
  15. CARVEDILOL [Concomitant]
     Active Substance: CARVEDILOL
  16. ATORVASTATIN CALCIUM [Concomitant]
     Active Substance: ATORVASTATIN CALCIUM
     Route: 048
  17. ALLEGRA-D [Concomitant]
     Active Substance: FEXOFENADINE HYDROCHLORIDE\PSEUDOEPHEDRINE HYDROCHLORIDE
     Dosage: 12 HOUR 60MG-120MG
  18. PREDNISOLONE [Concomitant]
     Active Substance: PREDNISOLONE
  19. MOXIFLOXACIN [Concomitant]
     Active Substance: MOXIFLOXACIN
  20. FLUTICASONE PROPIONATE [Concomitant]
     Active Substance: FLUTICASONE PROPIONATE
  21. TRIAMCINOLONE ACETONIDE [Concomitant]
     Active Substance: TRIAMCINOLONE ACETONIDE
  22. WARFARIN SODIUM [Concomitant]
     Active Substance: WARFARIN SODIUM
  23. ALBUTEROL SULFATE [Concomitant]
     Active Substance: ALBUTEROL SULFATE
     Dosage: HYDROFLUOROALKANE, AEROSOL WITH ADAPTER.
  24. DIFLUCAN [Concomitant]
     Active Substance: FLUCONAZOLE
     Route: 048
  25. LOTEPREDNOL [Concomitant]
     Active Substance: LOTEPREDNOL
  26. METOPROLOL SUCCINATE [Concomitant]
     Active Substance: METOPROLOL SUCCINATE
  27. CHOLECALCIFEROL [Concomitant]
     Active Substance: CHOLECALCIFEROL

REACTIONS (1)
  - Influenza [Unknown]

NARRATIVE: CASE EVENT DATE: 20221205
